FAERS Safety Report 25332173 (Version 1)
Quarter: 2025Q2

REPORT INFORMATION
  Report Type: Spontaneous
  Country: DE (occurrence: DE)
  Receive Date: 20250519
  Receipt Date: 20250519
  Transmission Date: 20250716
  Serious: Yes (Other)
  Sender: SANOFI AVENTIS
  Company Number: DE-Kohne Pharma GmbH-13ONCOX100R

PATIENT
  Sex: Male

DRUGS (9)
  1. OXALIPLATIN [Suspect]
     Active Substance: OXALIPLATIN
     Indication: Product used for unknown indication
     Dates: start: 20131202
  2. DEXAMETHASONE [Suspect]
     Active Substance: DEXAMETHASONE
  3. GRANISETRON [Suspect]
     Active Substance: GRANISETRON
  4. CALCIUM [Suspect]
     Active Substance: CALCIUM
  5. BEVACIZUMAB [Suspect]
     Active Substance: BEVACIZUMAB
  6. MAGNESIUM [Suspect]
     Active Substance: MAGNESIUM
  7. SODIUM CHLORIDE [Suspect]
     Active Substance: SODIUM CHLORIDE
  8. FLUOROURACIL [Suspect]
     Active Substance: FLUOROURACIL
  9. LEUCOVORIN CALCIUM [Suspect]
     Active Substance: LEUCOVORIN CALCIUM

REACTIONS (11)
  - Circulatory collapse [Recovered/Resolved]
  - Hyperhidrosis [Recovered/Resolved]
  - Personality change [Recovered/Resolved]
  - Dyspnoea [Recovered/Resolved]
  - Lip swelling [Recovered/Resolved]
  - Swelling face [Recovered/Resolved]
  - Anaphylactic reaction [Recovered/Resolved]
  - Hypersensitivity [Recovered/Resolved]
  - Hypotension [Recovered/Resolved]
  - Tachycardia [Recovered/Resolved]
  - Pyrexia [Recovered/Resolved]
